FAERS Safety Report 9685337 (Version 1)
Quarter: 2013Q4

REPORT INFORMATION
  Report Type: Spontaneous
  Country: US (occurrence: None)
  Receive Date: 20131112
  Receipt Date: 20131112
  Transmission Date: 20140711
  Serious: No
  Sender: FDA-Public Use
  Company Number: None

PATIENT
  Age: 45 Year
  Sex: Female
  Weight: 58.97 kg

DRUGS (4)
  1. TECFIDERA [Suspect]
     Indication: MULTIPLE SCLEROSIS
     Dosage: 1  2X/D  PO
     Route: 048
     Dates: start: 201305
  2. CANASA [Concomitant]
  3. SERTROLINE [Concomitant]
  4. MULTIVITAMIN [Concomitant]

REACTIONS (1)
  - Herpes zoster [None]
